FAERS Safety Report 22602818 (Version 2)
Quarter: 2023Q2

REPORT INFORMATION
  Report Type: Report from Study
  Country: CO (occurrence: CO)
  Receive Date: 20230615
  Receipt Date: 20230623
  Transmission Date: 20230721
  Serious: Yes (Hospitalization)
  Sender: FDA-Public Use
  Company Number: CO-ABBVIE-5290363

PATIENT
  Sex: Male
  Weight: 90 kg

DRUGS (1)
  1. VENCLEXTA [Suspect]
     Active Substance: VENETOCLAX
     Indication: Chronic lymphocytic leukaemia
     Dosage: FORM STRENGTH: 100 MILLIGRAM
     Route: 048
     Dates: start: 20230426, end: 20230619

REACTIONS (12)
  - Urinary retention [Not Recovered/Not Resolved]
  - Inflammation [Not Recovered/Not Resolved]
  - Weight decreased [Recovering/Resolving]
  - Renal failure [Not Recovered/Not Resolved]
  - Electric shock sensation [Recovering/Resolving]
  - Arthralgia [Recovering/Resolving]
  - Pain [Unknown]
  - Application site pain [Recovering/Resolving]
  - Mobility decreased [Recovering/Resolving]
  - Gait disturbance [Not Recovered/Not Resolved]
  - Osteoarthritis [Recovering/Resolving]
  - Dysstasia [Not Recovered/Not Resolved]

NARRATIVE: CASE EVENT DATE: 20230101
